FAERS Safety Report 6819409-1 (Version None)
Quarter: 2010Q3

REPORT INFORMATION
  Report Type: 
  Country: None (occurrence: None)
  Receive Date: 20100707
  Receipt Date: 20100628
  Transmission Date: 20110219
  Serious: Yes (Death)
  Sender: FDA-Public Use
  Company Number: US-PFIZER INC-2010071705

PATIENT
  Sex: Female
  Weight: 59.864 kg

DRUGS (1)
  1. SUTENT [Suspect]
     Indication: RENAL CANCER
     Dosage: 37.5 MG, 1X/DAY, 3WKS ON/2WKS OFF
     Route: 048
     Dates: start: 20090828, end: 20100527

REACTIONS (2)
  - DISEASE PROGRESSION [None]
  - RENAL CANCER [None]
